FAERS Safety Report 5382600-8 (Version None)
Quarter: 2007Q2

REPORT INFORMATION
  Report Type: 
  Country: None (occurrence: None)
  Receive Date: 20070629
  Receipt Date: 20070206
  Transmission Date: 20071010
  Serious: Yes (Other)
  Sender: FDA-Public Use
  Company Number: US200701004831

PATIENT
  Age: 75 Year
  Sex: Female

DRUGS (15)
  1. HUMALOG [Suspect]
     Indication: DIABETES MELLITUS
     Dates: start: 20010101
  2. LANTUS [Concomitant]
  3. COREG [Concomitant]
  4. ASPIRIN [Concomitant]
  5. SYNTHROID [Concomitant]
  6. LANOXIN [Concomitant]
  7. PREVACID [Concomitant]
  8. LASIX [Concomitant]
  9. ZYLOPRIM [Concomitant]
  10. APRESOLINE [Concomitant]
  11. POTASSIUM CHLORIDE [Concomitant]
  12. XANAX [Concomitant]
  13. RESTORIL [Concomitant]
  14. NEURONTIN [Concomitant]
  15. CYMBALTA [Concomitant]

REACTIONS (11)
  - ARTHRALGIA [None]
  - ARTHRITIS [None]
  - BLOOD GLUCOSE INCREASED [None]
  - CARDIOMYOPATHY [None]
  - EXOSTOSIS [None]
  - FOOD INTOLERANCE [None]
  - GAIT DISTURBANCE [None]
  - IMPLANTABLE DEFIBRILLATOR INSERTION [None]
  - NEURALGIA [None]
  - PAIN IN EXTREMITY [None]
  - WEIGHT INCREASED [None]
